FAERS Safety Report 19114279 (Version 1)
Quarter: 2021Q2

REPORT INFORMATION
  Report Type: Report from Study
  Country: CA (occurrence: CA)
  Receive Date: 20210409
  Receipt Date: 20210409
  Transmission Date: 20210717
  Serious: Yes (Other)
  Sender: FDA-Public Use
  Company Number: CA-JNJFOC-20210124433

PATIENT
  Age: 24 Year
  Sex: Male
  Weight: 72 kg

DRUGS (2)
  1. REMICADE [Suspect]
     Active Substance: INFLIXIMAB
     Dosage: STAT DOSE ON 01?APR?2021.
     Route: 042
  2. REMICADE [Suspect]
     Active Substance: INFLIXIMAB
     Indication: COLITIS ULCERATIVE
     Dosage: ON 15?JAN?2021, THE PATIENT RECEIVED 4TH, 355 MG OF INFUSION.
     Route: 042
     Dates: start: 20201103

REACTIONS (6)
  - Infusion related reaction [Recovered/Resolved]
  - Colitis ulcerative [Unknown]
  - Product use issue [Unknown]
  - Off label use [Unknown]
  - Tremor [Recovered/Resolved]
  - Back pain [Recovered/Resolved]

NARRATIVE: CASE EVENT DATE: 20210401
